FAERS Safety Report 4489353-6 (Version None)
Quarter: 2004Q4

REPORT INFORMATION
  Report Type: 
  Country: None (occurrence: None)
  Receive Date: 20041029
  Receipt Date: 20041022
  Transmission Date: 20050328
  Serious: Yes (Death)
  Sender: FDA-Public Use
  Company Number: US-MERCK-0410USA03514

PATIENT
  Age: 81 Year
  Sex: Female

DRUGS (2)
  1. VIOXX [Suspect]
     Indication: ARTHRITIS
     Route: 048
     Dates: start: 20040501
  2. CELEBREX [Concomitant]
     Route: 065

REACTIONS (1)
  - MYOCARDIAL INFARCTION [None]
